FAERS Safety Report 4761805-0 (Version None)
Quarter: 2005Q3

REPORT INFORMATION
  Report Type: 
  Country: None (occurrence: None)
  Receive Date: 20050831
  Receipt Date: 20050606
  Transmission Date: 20060218
  Serious: No
  Sender: FDA-Public Use
  Company Number: PHEH2005US06441

PATIENT
  Sex: 0

DRUGS (1)
  1. ENABLEX [Suspect]
     Dosage: ORAL
     Route: 048

REACTIONS (3)
  - CONSTIPATION [None]
  - DRY MOUTH [None]
  - VISION BLURRED [None]
